FAERS Safety Report 7322408-7 (Version None)
Quarter: 2011Q1

REPORT INFORMATION
  Report Type: 
  Country: None (occurrence: None)
  Receive Date: 20110301
  Receipt Date: 20110218
  Transmission Date: 20110831
  Serious: No
  Sender: FDA-Public Use
  Company Number: US-BIOGENIDEC-2011BI007137

PATIENT
  Sex: Female

DRUGS (3)
  1. COPAXONE [Concomitant]
  2. REBIF [Concomitant]
  3. TYSABRI [Suspect]
     Indication: PRODUCT USED FOR UNKNOWN INDICATION
     Route: 042

REACTIONS (1)
  - URINARY TRACT INFECTION [None]
